FAERS Safety Report 4758157-9 (Version None)
Quarter: 2005Q3

REPORT INFORMATION
  Report Type: 
  Country: None (occurrence: None)
  Receive Date: 20050831
  Receipt Date: 20050414
  Transmission Date: 20060218
  Serious: Yes (Other)
  Sender: FDA-Public Use
  Company Number: US-MERCK-0504USA02856

PATIENT
  Age: 71 Year
  Sex: Male
  Weight: 100 kg

DRUGS (19)
  1. VIOXX [Suspect]
     Indication: RHEUMATOID ARTHRITIS
     Route: 048
     Dates: start: 20010101, end: 20030301
  2. VIOXX [Suspect]
     Indication: RADIATION EXPOSURE
     Route: 048
     Dates: start: 20010101, end: 20030301
  3. ZOCOR [Concomitant]
     Route: 065
     Dates: start: 20000201
  4. DYAZIDE [Concomitant]
     Route: 065
  5. ISOSORBIDE [Concomitant]
     Route: 065
     Dates: start: 20000201
  6. TENORMIN [Concomitant]
     Route: 065
     Dates: start: 19800101
  7. DOCUSATE SODIUM [Concomitant]
     Route: 065
  8. DIPHENHYDRAMINE HYDROCHLORIDE [Concomitant]
     Route: 065
  9. AVANDIA [Concomitant]
     Route: 065
  10. PLAVIX [Concomitant]
     Route: 065
     Dates: start: 20000201
  11. LEXAPRO [Concomitant]
     Route: 065
  12. MONOPRIL [Concomitant]
     Route: 065
     Dates: start: 20000201
  13. ZESTRIL [Concomitant]
     Route: 065
     Dates: start: 20000201
  14. MAXZIDE [Concomitant]
     Route: 065
  15. NITROGLYCERIN [Concomitant]
     Route: 065
     Dates: start: 20000201
  16. TYLENOL W/ CODEINE NO. 3 [Concomitant]
     Route: 065
     Dates: start: 20000101
  17. PERCOCET [Concomitant]
     Route: 065
  18. DIGOXIN [Concomitant]
     Route: 065
     Dates: start: 20000201
  19. ASPIRIN [Concomitant]
     Route: 065
     Dates: start: 20000201

REACTIONS (7)
  - AORTIC ANEURYSM [None]
  - CARDIAC DISORDER [None]
  - CEREBROVASCULAR ACCIDENT [None]
  - DIABETES MELLITUS [None]
  - DYSPEPSIA [None]
  - GASTRIC DISORDER [None]
  - GOUT [None]
